FAERS Safety Report 9929311 (Version 2)
Quarter: 2014Q1

REPORT INFORMATION
  Report Type: Spontaneous
  Country: US (occurrence: US)
  Receive Date: 20140227
  Receipt Date: 20140227
  Transmission Date: 20141002
  Serious: Yes (Death, Life-Threatening, Hospitalization, Other)
  Sender: FDA-Public Use
  Company Number: US-009507513-0912USA01486

PATIENT
  Sex: Male
  Weight: 121 kg

DRUGS (7)
  1. JANUMET [Suspect]
     Indication: TYPE 2 DIABETES MELLITUS
     Dosage: 1000/50MGBID
     Route: 048
     Dates: start: 20081201
  2. JANUVIA [Suspect]
     Indication: TYPE 2 DIABETES MELLITUS
     Dosage: 100 MG, QD
     Route: 048
     Dates: start: 20080115, end: 20080214
  3. BYETTA [Suspect]
     Indication: TYPE 2 DIABETES MELLITUS
     Dosage: 10 MICROGRAM, BID
     Dates: start: 20080421, end: 20080731
  4. LEVOTHYROXINE SODIUM [Concomitant]
     Dosage: 125 MICROGRAM, QD
     Route: 048
  5. GLIMEPIRIDE [Concomitant]
     Dosage: 4 MG, QD
     Route: 048
  6. CIALIS [Concomitant]
     Dosage: 20 MG, QD
     Route: 048
  7. LEVEMIR [Concomitant]
     Dosage: UNK UNK, QD

REACTIONS (23)
  - Pancreatic carcinoma [Fatal]
  - Metastases to liver [Unknown]
  - Metastases to lymph nodes [Unknown]
  - Small cell carcinoma [Unknown]
  - Vision blurred [Unknown]
  - Neuroendocrine tumour [Unknown]
  - Lymphadenopathy [Unknown]
  - Acquired diaphragmatic eventration [Unknown]
  - Cataract operation [Unknown]
  - Blood pressure increased [Unknown]
  - Anxiety [Unknown]
  - Stress [Unknown]
  - Cholecystitis [Unknown]
  - Gallbladder disorder [Unknown]
  - Urinary tract infection [Unknown]
  - Cough [Unknown]
  - Dyspnoea [Unknown]
  - Micturition disorder [Unknown]
  - Hypothyroidism [Unknown]
  - Cataract [Unknown]
  - Constipation [Unknown]
  - Dyspepsia [Unknown]
  - Pain in extremity [Unknown]
